FAERS Safety Report 8662684 (Version 5)
Quarter: 2012Q4

REPORT INFORMATION
  Report Type: Report from Study
  Country: US (occurrence: None)
  Receive Date: 20120627
  Receipt Date: 20120925
  Transmission Date: 20130627
  Serious: Yes (Hospitalization, Other)
  Sender: FDA-Public Use
  Company Number: US-JNJFOC-20120610868

PATIENT
  Age: 60 Year
  Sex: Male
  Weight: 86 kg

DRUGS (2)
  1. DECITABINE [Suspect]
     Indication: ACUTE MYELOID LEUKAEMIA
     Route: 042
     Dates: start: 20120227, end: 20120307
  2. DECITABINE [Suspect]
     Indication: ACUTE MYELOID LEUKAEMIA
     Route: 042
     Dates: start: 20120326, end: 20120404

REACTIONS (15)
  - White blood cell count decreased [None]
  - Epistaxis [None]
  - Febrile neutropenia [None]
  - Hypoalbuminaemia [None]
  - Hypophosphataemia [None]
  - Platelet count decreased [None]
  - Upper respiratory tract infection [None]
  - Anaemia [None]
  - Atypical pneumonia [None]
  - Pneumonia fungal [None]
  - Sepsis [None]
  - Skin infection [None]
  - Lymphocyte count decreased [None]
  - Axillary mass [None]
  - Serratia infection [None]
